FAERS Safety Report 16301952 (Version 1)
Quarter: 2019Q2

REPORT INFORMATION
  Report Type: Spontaneous
  Country: US (occurrence: US)
  Receive Date: 20190512
  Receipt Date: 20190512
  Transmission Date: 20190711
  Serious: Yes (Other)
  Sender: FDA-Public Use
  Company Number: PHEH2019US020050

PATIENT
  Sex: Female

DRUGS (1)
  1. TASIGNA [Suspect]
     Active Substance: NILOTINIB
     Indication: CHRONIC MYELOID LEUKAEMIA
     Dosage: 01 DF, BID
     Route: 048

REACTIONS (24)
  - Femoral neck fracture [Unknown]
  - Radius fracture [Unknown]
  - Acute sinusitis [Unknown]
  - Cardiomyopathy [Unknown]
  - Cardiac failure congestive [Unknown]
  - Pleural effusion [Unknown]
  - Insomnia [Unknown]
  - Mitral valve incompetence [Unknown]
  - Left ventricular dysfunction [Unknown]
  - Cardiomegaly [Unknown]
  - Peripheral vascular disorder [Unknown]
  - Bronchitis [Unknown]
  - Pollakiuria [Unknown]
  - Coronary artery disease [Unknown]
  - Thrombocytopenia [Unknown]
  - Skin lesion [Unknown]
  - Hyponatraemia [Unknown]
  - Dyspnoea [Unknown]
  - Pericardial effusion [Unknown]
  - Pulmonary oedema [Unknown]
  - Hypokalaemia [Unknown]
  - Urinary tract infection [Unknown]
  - Anaemia [Unknown]
  - Acute respiratory failure [Unknown]
